FAERS Safety Report 9391047 (Version 1)
Quarter: 2013Q3

REPORT INFORMATION
  Report Type: Spontaneous
  Country: US (occurrence: None)
  Receive Date: 20130705
  Receipt Date: 20130705
  Transmission Date: 20140515
  Serious: Yes (Disabling)
  Sender: FDA-Public Use
  Company Number: None

PATIENT
  Age: 26 Year
  Sex: Female
  Weight: 57.15 kg

DRUGS (1)
  1. KENALOG [Suspect]
     Indication: DRUG HYPERSENSITIVITY
     Dates: start: 20130128, end: 20130128

REACTIONS (3)
  - Pregnancy [None]
  - Skin discolouration [None]
  - Injection site discomfort [None]
